FAERS Safety Report 4993883-8 (Version None)
Quarter: 2006Q2

REPORT INFORMATION
  Report Type: 
  Country: None (occurrence: None)
  Receive Date: 20060505
  Receipt Date: 20060425
  Transmission Date: 20061013
  Serious: Yes (Death)
  Sender: FDA-Public Use
  Company Number: US-MERCK-0604USA04099

PATIENT
  Age: 57 Year
  Sex: Male
  Weight: 101 kg

DRUGS (5)
  1. HYZAAR [Suspect]
     Route: 048
     Dates: start: 20020507, end: 20051201
  2. HYZAAR [Suspect]
     Route: 048
     Dates: start: 20051201
  3. LIPITOR [Concomitant]
     Route: 065
     Dates: start: 20051221
  4. TOPROL-XL [Concomitant]
     Route: 065
     Dates: end: 20051221
  5. ZOCOR [Concomitant]
     Route: 048
     Dates: start: 20051201

REACTIONS (2)
  - DEATH [None]
  - DRUG ADMINISTRATION ERROR [None]
